FAERS Safety Report 4713096-4 (Version None)
Quarter: 2005Q3

REPORT INFORMATION
  Report Type: 
  Country: None (occurrence: None)
  Receive Date: 20050711
  Receipt Date: 20050627
  Transmission Date: 20060218
  Serious: Yes (Hospitalization, Other)
  Sender: FDA-Public Use
  Company Number: GBWYE201915NOV04

PATIENT
  Age: 50 Year
  Sex: Male

DRUGS (18)
  1. RAPAMUNE [Suspect]
     Indication: PROPHYLAXIS AGAINST TRANSPLANT REJECTION
     Dosage: 3 MG 1X PER 1 DAY ORAL
     Route: 048
     Dates: start: 20040529
  2. MYCOPHENOLATE MOFETIL (MYCOPHENOLATE MOFETIL, , 0) [Suspect]
     Indication: PROPHYLAXIS AGAINST TRANSPLANT REJECTION
     Dosage: 500MG 3 X PER 1 DAY, ORAL
     Route: 048
     Dates: start: 20040529
  3. PREDNISOLONE [Suspect]
     Indication: PROPHYLAXIS AGAINST TRANSPLANT REJECTION
     Dosage: SEE IMAGE
     Route: 048
     Dates: start: 20040529, end: 20041106
  4. PREDNISOLONE [Suspect]
     Indication: PROPHYLAXIS AGAINST TRANSPLANT REJECTION
     Dosage: SEE IMAGE
     Route: 048
     Dates: start: 20041107
  5. ATENOLOL [Concomitant]
  6. AMLODIPINE [Concomitant]
  7. QUININE SULFPHATE (QUININE SULFATE) [Concomitant]
  8. THIAMINE (THIAMINE) [Concomitant]
  9. VITAMIN B-COMPLEX (VITAMIN B-COMPLEX) [Concomitant]
  10. RANITIDINE [Concomitant]
  11. ZENAPAX [Concomitant]
  12. ALFACALCIDOL (ALFACALCIDOL) [Concomitant]
  13. ATORVASTATIN CALCIUM [Concomitant]
  14. DOXAZOSIN (DOXAZOSIN) [Concomitant]
  15. SODIUM BICARONATE (SODIUM BICARONATE) [Concomitant]
  16. LISINOPRIL [Concomitant]
  17. SEPTRA [Concomitant]
  18. EPOETIN ALFA (EPOETIN ALFA) [Concomitant]

REACTIONS (1)
  - KIDNEY TRANSPLANT REJECTION [None]
